FAERS Safety Report 12536512 (Version 5)
Quarter: 2019Q4

REPORT INFORMATION
  Report Type: Spontaneous
  Country: US (occurrence: US)
  Receive Date: 20160707
  Receipt Date: 20191106
  Transmission Date: 20200122
  Serious: Yes (Death, Other)
  Sender: FDA-Public Use
  Company Number: US-PFIZER INC-2016303090

PATIENT
  Age: 84 Year
  Sex: Female
  Weight: 47.5 kg

DRUGS (12)
  1. IBRANCE [Suspect]
     Active Substance: PALBOCICLIB
     Indication: BREAST CANCER
     Dosage: 125 MG, CYCLIC (ONCE DAILY 21 DAYS ON THEN 7 DAYS OFF)
     Dates: start: 201601
  2. LETROZOLE. [Concomitant]
     Active Substance: LETROZOLE
     Dosage: 2.5 MG, DAILY
     Route: 048
     Dates: start: 20151123
  3. ATORVASTATIN [Concomitant]
     Active Substance: ATORVASTATIN
     Dosage: 20 MG, DAILY
     Route: 048
  4. LISINOPRIL. [Concomitant]
     Active Substance: LISINOPRIL
     Dosage: 40 MG, DAILY
     Route: 048
  5. IBRANCE [Suspect]
     Active Substance: PALBOCICLIB
     Indication: BREAST CANCER METASTATIC
     Dosage: 125 MG, CYCLIC (21DAYS ON /7 DAYS OFF)
     Route: 048
     Dates: start: 201511
  6. IBRANCE [Suspect]
     Active Substance: PALBOCICLIB
     Indication: HEPATIC NEOPLASM
     Dosage: 100 MG, UNK
     Dates: end: 20190827
  7. LETROZOLE. [Concomitant]
     Active Substance: LETROZOLE
     Dosage: UNK
     Dates: start: 201601
  8. ASPIRIN. [Concomitant]
     Active Substance: ASPIRIN
     Dosage: 325 MG, DAILY
     Route: 048
  9. IBRANCE [Suspect]
     Active Substance: PALBOCICLIB
     Indication: OSTEOPOROSIS
     Dosage: 125 MG, CYCLIC(DAILY FOR 21 DAYS, THEN FOR 7 DAYS WITH FOOD)
     Route: 048
     Dates: start: 20151209
  10. IBRANCE [Suspect]
     Active Substance: PALBOCICLIB
     Indication: BREAST CANCER FEMALE
  11. LETROZOLE. [Concomitant]
     Active Substance: LETROZOLE
     Dosage: 2.5 MG, UNK
     Dates: start: 201601
  12. TYLENOL [Concomitant]
     Active Substance: ACETAMINOPHEN
     Indication: HEADACHE
     Dosage: 325 MG, AS NEEDED (Q4HR (INTERVAL), 2 TABS)
     Route: 048

REACTIONS (4)
  - Fatigue [Recovered/Resolved]
  - Death [Fatal]
  - Neoplasm progression [Unknown]
  - Neutropenia [Recovered/Resolved]

NARRATIVE: CASE EVENT DATE: 201601
